FAERS Safety Report 7389053-9 (Version None)
Quarter: 2011Q2

REPORT INFORMATION
  Report Type: 
  Country: None (occurrence: None)
  Receive Date: 20110401
  Receipt Date: 20110322
  Transmission Date: 20111010
  Serious: Yes (Death, Hospitalization)
  Sender: FDA-Public Use
  Company Number: US-BAXTER-2011BH005534

PATIENT
  Age: 91 Year
  Sex: Male

DRUGS (1)
  1. DIANEAL [Suspect]
     Indication: PERITONEAL DIALYSIS
     Route: 033
     Dates: start: 20060516, end: 20110224

REACTIONS (6)
  - FUNGAL PERITONITIS [None]
  - FUNGAL INFECTION [None]
  - PERITONITIS BACTERIAL [None]
  - PERITONEAL DIALYSIS COMPLICATION [None]
  - SEPSIS [None]
  - DEVICE RELATED INFECTION [None]
